FAERS Safety Report 5365556-3 (Version None)
Quarter: 2007Q2

REPORT INFORMATION
  Report Type: 
  Country: None (occurrence: None)
  Receive Date: 20070621
  Receipt Date: 20070620
  Transmission Date: 20071010
  Serious: Yes (Hospitalization)
  Sender: FDA-Public Use
  Company Number: B0475975A

PATIENT
  Age: 60 Year
  Sex: Male

DRUGS (6)
  1. ZELITREX [Suspect]
     Indication: PROPHYLAXIS
     Dosage: 1G PER DAY
     Route: 048
     Dates: start: 20070425, end: 20070527
  2. ENDOXAN [Suspect]
     Route: 065
     Dates: start: 20070425, end: 20070430
  3. PRAVASTATIN [Suspect]
     Dosage: 1UNIT PER DAY
     Route: 048
     Dates: end: 20070527
  4. FLUDARA [Suspect]
     Route: 065
     Dates: start: 20070425, end: 20070430
  5. PLAVIX [Suspect]
     Dosage: 1UNIT PER DAY
     Route: 048
  6. BACTRIM [Suspect]
     Indication: PROPHYLAXIS
     Dosage: 1TAB PER DAY
     Route: 048
     Dates: start: 20070425, end: 20070522

REACTIONS (3)
  - PHOTOSENSITIVITY REACTION [None]
  - RASH ERYTHEMATOUS [None]
  - TOXIC SKIN ERUPTION [None]
